FAERS Safety Report 5717873-2 (Version None)
Quarter: 2008Q2

REPORT INFORMATION
  Report Type: 
  Country: None (occurrence: None)
  Receive Date: 20080425
  Receipt Date: 20071207
  Transmission Date: 20081010
  Serious: No
  Sender: FDA-Public Use
  Company Number: US-ABBOTT-07P-163-0428188-00

PATIENT
  Sex: Female
  Weight: 61.29 kg

DRUGS (1)
  1. ERYTHROMYCIN [Suspect]
     Indication: INFECTION
     Route: 048
     Dates: start: 19971201, end: 19971201

REACTIONS (1)
  - URTICARIA [None]
